FAERS Safety Report 7674923-4 (Version None)
Quarter: 2011Q3

REPORT INFORMATION
  Report Type: 
  Country: None (occurrence: None)
  Receive Date: 20110810
  Receipt Date: 20110728
  Transmission Date: 20111222
  Serious: Yes (Other)
  Sender: FDA-Public Use
  Company Number: CA-ELI_LILLY_AND_COMPANY-CA201107007581

PATIENT
  Sex: Male

DRUGS (17)
  1. OXAZEPAM [Concomitant]
  2. METHOPROMAZINE [Concomitant]
  3. DILANTIN [Concomitant]
  4. BENZTROPINE MESYLATE [Concomitant]
  5. NOZINAN [Concomitant]
  6. ZYPREXA [Suspect]
     Dosage: 20 MG, QD
  7. METHOTREXATE [Concomitant]
  8. ENBREL [Concomitant]
  9. TEMAZEPAM [Concomitant]
  10. AZATHIOPRINE [Concomitant]
  11. REMERON [Concomitant]
  12. FOLIC ACID [Concomitant]
  13. ZYPREXA [Suspect]
     Indication: SCHIZOPHRENIA, PARANOID TYPE
     Dosage: 10 MG, UNK
     Dates: start: 20031001
  14. ZYPREXA [Suspect]
     Dosage: 5 MG, UNK
  15. RABEPRAZOLE SODIUM [Concomitant]
  16. FLUOXETINE [Concomitant]
  17. BETAMETHASONE [Concomitant]

REACTIONS (5)
  - GLUCOSE TOLERANCE IMPAIRED [None]
  - HEPATITIS C [None]
  - DIABETES MELLITUS [None]
  - WEIGHT INCREASED [None]
  - PLATELET COUNT DECREASED [None]
